FAERS Safety Report 26193225 (Version 1)
Quarter: 2025Q4

REPORT INFORMATION
  Report Type: Spontaneous
  Country: EU (occurrence: EU)
  Receive Date: 20251223
  Receipt Date: 20251223
  Transmission Date: 20260118
  Serious: Yes (Hospitalization, Other)
  Sender: TAKEDA
  Company Number: None

PATIENT
  Age: 28 Year
  Sex: Female
  Weight: 42 kg

DRUGS (1)
  1. ENTYVIO [Suspect]
     Active Substance: VEDOLIZUMAB
     Indication: Crohn^s disease
     Dosage: 300 MILLIGRAM

REACTIONS (2)
  - Abortion spontaneous [Recovered/Resolved with Sequelae]
  - Amniotic cavity infection [Recovered/Resolved with Sequelae]

NARRATIVE: CASE EVENT DATE: 20251029
